FAERS Safety Report 24199856 (Version 1)
Quarter: 2024Q3

REPORT INFORMATION
  Report Type: Spontaneous
  Country: JP (occurrence: JP)
  Receive Date: 20240812
  Receipt Date: 20240812
  Transmission Date: 20241017
  Serious: Yes (Death, Other)
  Sender: AMNEAL
  Company Number: JP-AMNEAL PHARMACEUTICALS-2024-AMRX-02881

PATIENT

DRUGS (2)
  1. LACOSAMIDE [Suspect]
     Active Substance: LACOSAMIDE
     Indication: Product used for unknown indication
     Dosage: UNK
     Route: 065
  2. MIRTAZAPINE [Suspect]
     Active Substance: MIRTAZAPINE
     Indication: Product used for unknown indication
     Dosage: UNK
     Route: 065

REACTIONS (4)
  - Cardiotoxicity [Fatal]
  - Depressed level of consciousness [Fatal]
  - Toxicity to various agents [Fatal]
  - Intentional overdose [Unknown]
